FAERS Safety Report 5425428-2 (Version None)
Quarter: 2007Q3

REPORT INFORMATION
  Report Type: 
  Country: None (occurrence: None)
  Receive Date: 20070824
  Receipt Date: 20070808
  Transmission Date: 20080115
  Serious: No
  Sender: FDA-Public Use
  Company Number: US-BOEHRINGER INGELHEIM PHARMACEUTICALS, INC.-2007-BP-18890BP

PATIENT

DRUGS (1)
  1. MICARDIS [Suspect]

REACTIONS (1)
  - MIGRAINE [None]
